FAERS Safety Report 14771863 (Version 2)
Quarter: 2018Q4

REPORT INFORMATION
  Report Type: Report from Study
  Country: US (occurrence: US)
  Receive Date: 20180417
  Receipt Date: 20181112
  Transmission Date: 20190204
  Serious: Yes (Hospitalization)
  Sender: FDA-Public Use
  Company Number: US-ACTELION-A-NJ2018-170710

PATIENT
  Age: 48 Year
  Sex: Female

DRUGS (3)
  1. ZAVESCA [Suspect]
     Active Substance: MIGLUSTAT
     Indication: FABRY^S DISEASE
     Dosage: 100 MG, TID
     Route: 048
     Dates: start: 20151027
  2. MULTIVITAMINS [Concomitant]
     Active Substance: VITAMINS
     Dosage: 1 TABLET, QD
     Dates: start: 20170811
  3. MOTRIN [Concomitant]
     Active Substance: IBUPROFEN
     Dosage: 200 MG, PRN
     Route: 048
     Dates: start: 20151026

REACTIONS (2)
  - Hospitalisation [Unknown]
  - Fractured coccyx [Unknown]

NARRATIVE: CASE EVENT DATE: 20180327
